FAERS Safety Report 5771220-9 (Version None)
Quarter: 2008Q2

REPORT INFORMATION
  Report Type: 
  Country: None (occurrence: None)
  Receive Date: 20080613
  Receipt Date: 20080528
  Transmission Date: 20081010
  Serious: No
  Sender: FDA-Public Use
  Company Number: US-ABBOTT-08P-163-0453798-00

PATIENT
  Sex: Female
  Weight: 46.308 kg

DRUGS (16)
  1. HUMIRA [Suspect]
     Indication: CROHN'S DISEASE
     Route: 058
     Dates: start: 20080527, end: 20080527
  2. HUMIRA [Suspect]
  3. LEVOTHYROXINE SODIUM [Concomitant]
     Indication: HORMONE REPLACEMENT THERAPY
     Route: 048
     Dates: start: 19710101
  4. ESOMEPRAZOLE MAGNESIUM [Concomitant]
     Indication: CROHN'S DISEASE
     Route: 048
     Dates: start: 19980101
  5. CYANOCOBALAMIN-TANNIN COMPLEX [Concomitant]
     Indication: PERNICIOUS ANAEMIA
     Route: 050
     Dates: start: 20010101
  6. PREDNISONE TAB [Concomitant]
     Indication: CROHN'S DISEASE
     Route: 048
     Dates: start: 19980101
  7. ATORVASTATIN CALCIUM [Concomitant]
     Indication: BLOOD CHOLESTEROL
     Route: 048
     Dates: start: 20080301
  8. IRON [Concomitant]
     Indication: ANAEMIA
     Route: 048
     Dates: start: 20080301
  9. ALENDRONATE SODIUM [Concomitant]
     Indication: OSTEOPOROSIS PROPHYLAXIS
     Route: 048
     Dates: start: 20080201
  10. CALCIUM [Concomitant]
     Indication: MINERAL SUPPLEMENTATION
     Route: 048
     Dates: start: 20080201
  11. HYOSCYAMINE SULFATE [Concomitant]
     Indication: ABDOMINAL PAIN
     Route: 060
     Dates: start: 20020101
  12. ESTRADIOL [Concomitant]
     Indication: HYSTERECTOMY
     Route: 062
     Dates: start: 19730101
  13. VALIUM [Concomitant]
     Indication: MIGRAINE
     Route: 048
  14. PHENERGAN [Concomitant]
     Indication: HEADACHE
     Route: 048
  15. PHENERGAN [Concomitant]
     Indication: NAUSEA
  16. FIORNAL #3 [Concomitant]
     Indication: MIGRAINE
     Route: 048
     Dates: start: 19630101

REACTIONS (1)
  - INJECTION SITE PAIN [None]
